FAERS Safety Report 9649339 (Version 2)
Quarter: 2013Q4

REPORT INFORMATION
  Report Type: Spontaneous
  Country: FR (occurrence: FR)
  Receive Date: 20131028
  Receipt Date: 20131108
  Transmission Date: 20140711
  Serious: Yes (Death)
  Sender: FDA-Public Use
  Company Number: FR-PFIZER INC-2013305896

PATIENT
  Age: 66 Year
  Sex: Female

DRUGS (5)
  1. FLUOROURACILE PFIZER [Suspect]
     Indication: OESOPHAGEAL SQUAMOUS CELL CARCINOMA
     Dosage: 1200 MG, 1X/DAY (750 MG/M2/DAY FROM DAY 1 TO DAY 5)
     Route: 042
     Dates: start: 20130624, end: 20130628
  2. TAXOTERE [Suspect]
     Indication: OESOPHAGEAL SQUAMOUS CELL CARCINOMA
     Dosage: 120 MG, CYCLIC (75 MG/M2 ON DAY 1)
     Route: 042
     Dates: start: 20130624, end: 20130624
  3. CISPLATINE MYLAN [Suspect]
     Indication: OESOPHAGEAL SQUAMOUS CELL CARCINOMA
     Dosage: 120 MG, CYCLIC (75 MG/M2 ON DAY 1)
     Route: 042
     Dates: start: 20130624, end: 20130624
  4. APROVEL [Concomitant]
  5. OGASTRORO [Concomitant]

REACTIONS (1)
  - Septic shock [Fatal]
